FAERS Safety Report 17946301 (Version 1)
Quarter: 2020Q2

REPORT INFORMATION
  Report Type: Spontaneous
  Country: DE (occurrence: DE)
  Receive Date: 20200625
  Receipt Date: 20200625
  Transmission Date: 20200714
  Serious: Yes (Death, Hospitalization, Other)
  Sender: FDA-Public Use
  Company Number: NVSC2020DE178510

PATIENT
  Age: 81 Year
  Sex: Male

DRUGS (2)
  1. HEPARIN [Suspect]
     Active Substance: HEPARIN SODIUM
     Indication: PRODUCT USED FOR UNKNOWN INDICATION
     Dosage: UNK (EVERY)
     Route: 065
  2. ELIQUIS [Suspect]
     Active Substance: APIXABAN
     Indication: ANTIPHOSPHOLIPID SYNDROME
     Dosage: 10 MG QD
     Route: 065
     Dates: start: 20180328, end: 20180409

REACTIONS (5)
  - Cerebral haemorrhage [Fatal]
  - Intentional product use issue [Unknown]
  - Blood urine present [Unknown]
  - Brain herniation [Fatal]
  - Hypertensive urgency [Unknown]
